FAERS Safety Report 8926477 (Version 2)
Quarter: 2013Q2

REPORT INFORMATION
  Report Type: Report from Study
  Country: DE (occurrence: DE)
  Receive Date: 20121127
  Receipt Date: 20130423
  Transmission Date: 20140414
  Serious: Yes (Other)
  Sender: FDA-Public Use
  Company Number: DE-UCBSA-071603

PATIENT
  Age: 46 Year
  Sex: Male

DRUGS (6)
  1. VIMPAT [Suspect]
     Indication: EPILEPSY
     Route: 048
     Dates: start: 20090126, end: 2009
  2. VIMPAT [Suspect]
     Indication: EPILEPSY
     Route: 048
     Dates: start: 2009, end: 200904
  3. VIMPAT [Suspect]
     Indication: EPILEPSY
     Route: 048
     Dates: start: 200904, end: 20090724
  4. PHENOBARBITONE [Concomitant]
     Route: 048
  5. PHENYTOIN [Concomitant]
     Route: 048
     Dates: end: 200904
  6. PHENYTOIN [Concomitant]
     Route: 048
     Dates: start: 200904

REACTIONS (2)
  - Convulsion [Unknown]
  - Drug ineffective [Recovered/Resolved]
